FAERS Safety Report 13081191 (Version 1)
Quarter: 2017Q1

REPORT INFORMATION
  Report Type: Report from Study
  Country: US (occurrence: US)
  Receive Date: 20170103
  Receipt Date: 20170103
  Transmission Date: 20170428
  Serious: Yes (Other)
  Sender: FDA-Public Use
  Company Number: US-MYLANLABS-2016M1058216

PATIENT

DRUGS (1)
  1. DEXAMETHASONE. [Suspect]
     Active Substance: DEXAMETHASONE
     Indication: VOCAL CORD DISORDER
     Dosage: 0.1 MLOF A 10 MG/ML
     Route: 050

REACTIONS (1)
  - Vocal cord atrophy [Recovered/Resolved]
